FAERS Safety Report 7276758-3 (Version None)
Quarter: 2011Q1

REPORT INFORMATION
  Report Type: 
  Country: None (occurrence: None)
  Receive Date: 20110206
  Receipt Date: 20110128
  Transmission Date: 20110831
  Serious: Yes (Hospitalization)
  Sender: FDA-Public Use
  Company Number: US-BAYER-2011-010537

PATIENT
  Sex: Female
  Weight: 104 kg

DRUGS (1)
  1. ASPIRIN [Suspect]
     Dosage: 325 MG, 99 TABLETS
     Route: 048
     Dates: start: 20110126, end: 20110126

REACTIONS (1)
  - INTENTIONAL OVERDOSE [None]
